FAERS Safety Report 8493998 (Version 2)
Quarter: 2013Q4

REPORT INFORMATION
  Report Type: Report from Study
  Country: IT (occurrence: IT)
  Receive Date: 20120404
  Receipt Date: 20131024
  Transmission Date: 20140711
  Serious: Yes (Death, Hospitalization)
  Sender: FDA-Public Use
  Company Number: IT-CELGENEUS-083-21880-12032466

PATIENT
  Age: 75 Year
  Sex: Male
  Weight: 74 kg

DRUGS (11)
  1. REVLIMID [Suspect]
     Indication: ACUTE MYELOID LEUKAEMIA
     Dosage: 10 MILLIGRAM
     Route: 048
     Dates: start: 20110807, end: 20110827
  2. REVLIMID [Suspect]
     Dosage: 10 MILLIGRAM
     Route: 048
     Dates: start: 20110919, end: 20111009
  3. CYTARABINE [Concomitant]
     Indication: ACUTE MYELOID LEUKAEMIA
     Dosage: 20 MILLIGRAM
     Route: 058
     Dates: start: 20110807, end: 20110827
  4. CYTARABINE [Concomitant]
     Dosage: 40 MILLIGRAM
     Route: 058
     Dates: start: 20110919, end: 20111003
  5. LEVOFLOXACIN [Concomitant]
     Indication: ANTI-INFECTIVE THERAPY
     Dosage: 500 MILLIGRAM
     Route: 065
     Dates: start: 20110831, end: 20110904
  6. ACYCLOVIR [Concomitant]
     Indication: ANTIVIRAL PROPHYLAXIS
     Route: 048
     Dates: start: 20110807, end: 20111009
  7. BACTRIM [Concomitant]
     Indication: ANTIVIRAL PROPHYLAXIS
     Route: 048
     Dates: start: 20110807, end: 20111009
  8. TRAMEX [Concomitant]
     Indication: HAEMORRHAGE
     Route: 065
  9. POSACONAZOLE [Concomitant]
     Indication: ANTIFUNGAL PROPHYLAXIS
     Dosage: 10 MILLILITER
     Route: 048
     Dates: start: 20110807, end: 20111009
  10. LANSOPRAZOLE [Concomitant]
     Indication: PROPHYLAXIS
     Dosage: 1 CAPSULE
     Route: 048
     Dates: start: 20110807, end: 20111009
  11. ZYLORIC [Concomitant]
     Indication: BLOOD URIC ACID INCREASED
     Dosage: 300 MILLIGRAM
     Route: 065
     Dates: start: 20110807, end: 20111009

REACTIONS (2)
  - Multi-organ failure [Fatal]
  - Acute myeloid leukaemia [Fatal]
